FAERS Safety Report 7347178-8 (Version None)
Quarter: 2011Q1

REPORT INFORMATION
  Report Type: 
  Country: None (occurrence: None)
  Receive Date: 20110311
  Receipt Date: 20110311
  Transmission Date: 20110831
  Serious: Yes (Other)
  Sender: FDA-Public Use
  Company Number: US-PFIZER INC-2009165528

PATIENT
  Sex: Female
  Weight: 58.957 kg

DRUGS (2)
  1. PETIBELLE FILMTABLETTEN [Concomitant]
     Dosage: UNK
  2. CHANTIX [Suspect]
     Indication: SMOKING CESSATION THERAPY
     Dosage: 0.5 MG, 1X/DAY
     Dates: start: 20090126, end: 20090129

REACTIONS (1)
  - LOSS OF CONSCIOUSNESS [None]
